FAERS Safety Report 24645931 (Version 2)
Quarter: 2024Q4

REPORT INFORMATION
  Report Type: Report from Study
  Country: US (occurrence: US)
  Receive Date: 20241121
  Receipt Date: 20241231
  Transmission Date: 20250115
  Serious: Yes (Other)
  Sender: ACADIA PHARMACEUTICALS
  Company Number: US-ACADIA PHARMACEUTICALS INC.-ACA-2024-PIM-007044

PATIENT
  Age: 68 Year
  Sex: Male

DRUGS (16)
  1. NUPLAZID [Suspect]
     Active Substance: PIMAVANSERIN TARTRATE
     Indication: Parkinson^s disease psychosis
     Dosage: 34 MILLIGRAM, QD
     Route: 048
     Dates: start: 20240812
  2. NUPLAZID [Suspect]
     Active Substance: PIMAVANSERIN TARTRATE
     Indication: Parkinson^s disease
  3. SEROQUEL [Concomitant]
     Active Substance: QUETIAPINE FUMARATE
  4. HALOPERIDOL [Concomitant]
     Active Substance: HALOPERIDOL
  5. TRAMADOL HCL [Concomitant]
     Active Substance: TRAMADOL HYDROCHLORIDE
  6. MYRBETRIQ [Concomitant]
     Active Substance: MIRABEGRON
  7. ACETAMINOPHEN [Concomitant]
     Active Substance: ACETAMINOPHEN
  8. RIVASTIGMINE [Concomitant]
     Active Substance: RIVASTIGMINE
  9. VITAMIN B12 [Concomitant]
     Active Substance: CYANOCOBALAMIN
  10. MELATONIN [Concomitant]
     Active Substance: MELATONIN
  11. GABAPENTIN [Concomitant]
     Active Substance: GABAPENTIN
  12. CARBIDOPA, LEVODOPA AND ENTACAPONE [Concomitant]
     Active Substance: CARBIDOPA\ENTACAPONE\LEVODOPA
  13. PREVACID [Concomitant]
     Active Substance: LANSOPRAZOLE
  14. RYTARY [Concomitant]
     Active Substance: CARBIDOPA\LEVODOPA
  15. GOCOVRI [Concomitant]
     Active Substance: AMANTADINE
  16. URICALM [PHENAZOPYRIDINE HYDROCHLORIDE] [Concomitant]

REACTIONS (3)
  - Terminal state [Not Recovered/Not Resolved]
  - Limb operation [Not Recovered/Not Resolved]
  - Gait inability [Not Recovered/Not Resolved]

NARRATIVE: CASE EVENT DATE: 20240601
